FAERS Safety Report 9475541 (Version 2)
Quarter: 2013Q3

REPORT INFORMATION
  Report Type: Spontaneous
  Country: US (occurrence: None)
  Receive Date: 20130821
  Receipt Date: 20130823
  Transmission Date: 20140515
  Serious: Yes (Hospitalization)
  Sender: FDA-Public Use
  Company Number: 1842781

PATIENT
  Age: 53 Year
  Sex: Male

DRUGS (3)
  1. GENTAMICIN SULFATE [Suspect]
     Indication: BIOPSY PROSTATE
     Route: 030
     Dates: start: 20131101
  2. GENTAMICIN SULFATE [Suspect]
     Route: 030
     Dates: start: 20131101
  3. (ANTIGOUT PREPARATIONS) [Concomitant]

REACTIONS (2)
  - Sepsis [None]
  - Escherichia bacteraemia [None]
